FAERS Safety Report 5765621-2 (Version None)
Quarter: 2008Q2

REPORT INFORMATION
  Report Type: 
  Country: None (occurrence: None)
  Receive Date: 20080611
  Receipt Date: 20080605
  Transmission Date: 20081010
  Serious: Yes (Other)
  Sender: FDA-Public Use
  Company Number: US-ASTRAZENECA-2006UW21230

PATIENT
  Age: 72 Year
  Sex: Female
  Weight: 63.6 kg

DRUGS (5)
  1. SEROQUEL [Suspect]
     Indication: SCHIZOPHRENIA
     Dosage: 100-300 MG
     Route: 048
     Dates: start: 20010205, end: 20040101
  2. SEROQUEL [Suspect]
     Indication: DEPRESSION
     Dosage: 100-300 MG
     Route: 048
     Dates: start: 20010205, end: 20040101
  3. THORAZINE [Concomitant]
     Dates: start: 19500101, end: 20010101
  4. THORAZINE [Concomitant]
     Dates: start: 20050101
  5. ZYPREXA/SYMBYAX (OLANZAPINE) [Concomitant]
     Dosage: 1 A MONTH
     Dates: start: 20040101

REACTIONS (3)
  - AMPUTATION [None]
  - DIABETIC KETOACIDOSIS [None]
  - TYPE 2 DIABETES MELLITUS [None]
